FAERS Safety Report 8390312-1 (Version None)
Quarter: 2012Q2

REPORT INFORMATION
  Report Type: 
  Country: None (occurrence: None)
  Receive Date: 20120529
  Receipt Date: 20120517
  Transmission Date: 20120825
  Serious: Yes (Hospitalization)
  Sender: FDA-Public Use
  Company Number: US-JNJFOC-20110300940

PATIENT
  Sex: Male
  Weight: 101 kg

DRUGS (16)
  1. ABIRATERONE ACETATE [Suspect]
     Route: 048
  2. OXYCODONE HCL [Concomitant]
     Indication: BACK PAIN
     Route: 065
     Dates: start: 20110217
  3. FENTANYL-100 [Concomitant]
     Indication: ABDOMINAL PAIN
     Route: 065
     Dates: start: 20110217
  4. FLOMAX [Concomitant]
     Indication: BENIGN PROSTATIC HYPERPLASIA
     Route: 065
     Dates: start: 20070213
  5. LASIX [Concomitant]
     Indication: HYPERTENSION
     Route: 065
     Dates: start: 20100407
  6. ABIRATERONE ACETATE [Suspect]
     Indication: PROSTATE CANCER METASTATIC
     Route: 048
     Dates: start: 20110224, end: 20110228
  7. MIRALAX [Concomitant]
     Route: 065
     Dates: start: 20100801
  8. VITAMIN D [Concomitant]
     Indication: MEDICAL DIET
     Route: 065
     Dates: start: 20080929
  9. FENTANYL-100 [Concomitant]
     Indication: BACK PAIN
     Route: 065
     Dates: start: 20110217
  10. METAMUCIL-2 [Concomitant]
     Indication: CONSTIPATION
     Route: 065
     Dates: start: 20110217, end: 20110218
  11. LOTENSIN [Concomitant]
     Indication: HYPERTENSION
     Route: 065
     Dates: start: 20041013
  12. PREDNISONE [Suspect]
     Indication: PROSTATE CANCER METASTATIC
     Route: 048
     Dates: start: 20110224, end: 20110228
  13. SENNA-MINT WAF [Concomitant]
     Indication: CONSTIPATION
     Route: 065
     Dates: start: 20110217, end: 20110218
  14. OXYCONTIN [Concomitant]
     Indication: BACK PAIN
     Route: 065
     Dates: start: 20110226, end: 20110315
  15. NORVASC [Concomitant]
     Indication: HYPERTENSION
     Route: 065
     Dates: start: 20070407
  16. DEGARELIX [Concomitant]
     Indication: HORMONE THERAPY
     Route: 065
     Dates: start: 20101012

REACTIONS (1)
  - BACTERIAL INFECTION [None]
